FAERS Safety Report 11991108 (Version 1)
Quarter: 2016Q1

REPORT INFORMATION
  Report Type: Spontaneous
  Country: US (occurrence: US)
  Receive Date: 20160203
  Receipt Date: 20160203
  Transmission Date: 20160526
  Serious: Yes (Hospitalization)
  Sender: FDA-Public Use
  Company Number: US-CIPLA LTD.-2016US00557

PATIENT

DRUGS (1)
  1. CITALOPRAM [Suspect]
     Active Substance: CITALOPRAM HYDROBROMIDE
     Indication: DEPRESSION
     Route: 065

REACTIONS (13)
  - Clonus [Unknown]
  - Atrial fibrillation [Unknown]
  - Unresponsive to stimuli [Unknown]
  - Cardiogenic shock [Recovered/Resolved]
  - Toxicity to various agents [Unknown]
  - Respiratory acidosis [Unknown]
  - Hyperreflexia [Unknown]
  - Cardiomyopathy [Unknown]
  - Blood creatine phosphokinase increased [Unknown]
  - Troponin I increased [Unknown]
  - Hypotension [Unknown]
  - Hyperlactacidaemia [Unknown]
  - Hypothermia [Unknown]
